FAERS Safety Report 9281839 (Version 1)
Quarter: 2013Q2

REPORT INFORMATION
  Report Type: Report from Study
  Country: GB (occurrence: GB)
  Receive Date: 20130510
  Receipt Date: 20130510
  Transmission Date: 20140414
  Serious: Yes (Other)
  Sender: FDA-Public Use
  Company Number: GB-AMGEN-GBRCT2013031921

PATIENT
  Age: 70 Year
  Sex: Male

DRUGS (6)
  1. ETANERCEPT [Suspect]
     Indication: PRODUCT USED FOR UNKNOWN INDICATION
     Dosage: 50 MG, QWK
     Dates: start: 20100818
  2. ACETYLSALICYLIC ACID [Concomitant]
     Dosage: UNK
     Dates: start: 20100920
  3. DICLOFENAC [Concomitant]
     Dosage: UNK
     Dates: start: 20100920
  4. DILTIAZEM [Concomitant]
     Dosage: UNK
     Dates: start: 20100920
  5. EZETIMIBE [Concomitant]
     Dosage: UNK
     Dates: start: 20100920
  6. ACITRETIN [Concomitant]
     Dosage: UNK
     Dates: start: 20111102

REACTIONS (1)
  - Squamous cell carcinoma [Recovered/Resolved]
